FAERS Safety Report 22131806 (Version 7)
Quarter: 2024Q4

REPORT INFORMATION
  Report Type: Spontaneous
  Country: US (occurrence: US)
  Receive Date: 20230323
  Receipt Date: 20241231
  Transmission Date: 20250115
  Serious: No
  Sender: PFIZER
  Company Number: US-PFIZER INC-202201050249

PATIENT
  Age: 74 Year
  Sex: Female

DRUGS (1)
  1. XELJANZ XR [Suspect]
     Active Substance: TOFACITINIB CITRATE
     Dosage: 11 MG

REACTIONS (6)
  - Pain [Unknown]
  - Movement disorder [Unknown]
  - Pain in extremity [Unknown]
  - Gait inability [Unknown]
  - Dyskinesia [Unknown]
  - Pain in extremity [Unknown]
